FAERS Safety Report 6343889-1 (Version None)
Quarter: 2009Q3

REPORT INFORMATION
  Report Type: 
  Country: None (occurrence: None)
  Receive Date: 20090908
  Receipt Date: 20090826
  Transmission Date: 20100115
  Serious: Yes (Other)
  Sender: FDA-Public Use
  Company Number: US-PFIZER INC-2009246241

PATIENT
  Sex: Male

DRUGS (3)
  1. GLIPIZIDE [Suspect]
     Dosage: 10 MG, 2X/DAY
  2. METFORMIN HCL [Suspect]
  3. SITAGLIPTIN [Suspect]

REACTIONS (2)
  - BLOOD GLUCOSE INCREASED [None]
  - DIARRHOEA [None]
